FAERS Safety Report 25466412 (Version 1)
Quarter: 2025Q2

REPORT INFORMATION
  Report Type: Spontaneous
  Country: ES (occurrence: ES)
  Receive Date: 20250623
  Receipt Date: 20250623
  Transmission Date: 20250716
  Serious: Yes (Hospitalization, Other)
  Sender: ACCORD
  Company Number: ES-MLMSERVICE-20250605-PI530542-00043-1

PATIENT
  Age: 64 Year
  Sex: Female

DRUGS (2)
  1. ALLOPURINOL [Suspect]
     Active Substance: ALLOPURINOL
     Indication: Hyperuricaemia
  2. ENALAPRIL [Concomitant]
     Active Substance: ENALAPRIL
     Indication: Hypertension

REACTIONS (3)
  - Stevens-Johnson syndrome [Recovering/Resolving]
  - Atrophic glossitis [Unknown]
  - Onychomadesis [Unknown]
